FAERS Safety Report 6313827-6 (Version None)
Quarter: 2009Q3

REPORT INFORMATION
  Report Type: 
  Country: None (occurrence: None)
  Receive Date: 20090814
  Receipt Date: 20090731
  Transmission Date: 20100115
  Serious: Yes (Hospitalization)
  Sender: FDA-Public Use
  Company Number: 2009BI024415

PATIENT
  Age: 66 Year
  Sex: Female

DRUGS (11)
  1. ZEVALIN [Suspect]
     Indication: LYMPHOMA
     Dosage: 511 MBQ;1X; IV
     Route: 042
     Dates: start: 20090407, end: 20090414
  2. RITUXAN [Concomitant]
  3. PROTECADIN [Concomitant]
  4. BAKTAR [Concomitant]
  5. DIFLUCAN [Concomitant]
  6. LOXONIN [Concomitant]
  7. POLARAMINE [Concomitant]
  8. RITUXIMAB [Concomitant]
  9. DEXAMETHASONE [Concomitant]
  10. CYTARABINE [Concomitant]
  11. CYCLOPHOSPHAMIDE [Concomitant]

REACTIONS (1)
  - BONE MARROW FAILURE [None]
